FAERS Safety Report 7715922-3 (Version None)
Quarter: 2011Q3

REPORT INFORMATION
  Report Type: 
  Country: None (occurrence: None)
  Receive Date: 20110812
  Receipt Date: 20110331
  Transmission Date: 20111222
  Serious: Yes (Other)
  Sender: FDA-Public Use
  Company Number: 2011028047

PATIENT
  Age: 82 Year
  Sex: Female
  Weight: 75.7507 kg

DRUGS (18)
  1. NIACIN [Concomitant]
  2. NEXIUM [Concomitant]
  3. ASPIRIN [Concomitant]
  4. CALCIUM CARBONATE [Concomitant]
  5. PRAZOSIN GITS [Concomitant]
  6. WELCHOL [Concomitant]
  7. HIZENTRA [Suspect]
     Indication: IMMUNODEFICIENCY COMMON VARIABLE
     Dosage: (10 G 1X/WEEK, INFUSED 50ML SUBCUTANEOUS)
     Route: 058
     Dates: start: 20110222, end: 20110308
  8. HIZENTRA [Suspect]
     Indication: IMMUNODEFICIENCY COMMON VARIABLE
     Dosage: (10 G 1X/WEEK, INFUSED 50ML SUBCUTANEOUS)
     Route: 058
     Dates: start: 20101111
  9. HIZENTRA [Suspect]
     Indication: IMMUNODEFICIENCY COMMON VARIABLE
     Dosage: (10 G 1X/WEEK, INFUSED 50ML SUBCUTANEOUS)
     Route: 058
     Dates: start: 20110222, end: 20110308
  10. SYNTHROID [Concomitant]
  11. ADVAIR HFA [Concomitant]
  12. ALBUTEROL [Concomitant]
  13. HYDROCHLOROTHIAZIDE [Concomitant]
  14. MELOXICAM [Concomitant]
  15. HIZENTRA [Suspect]
  16. PREDNISONE [Concomitant]
  17. POTASSIUM CHLORIDE [Concomitant]
  18. OMEGA-3 (OMEGA-3 TRIGLYCERIDES) [Concomitant]

REACTIONS (4)
  - MYALGIA [None]
  - RENAL FAILURE ACUTE [None]
  - FATIGUE [None]
  - PAIN [None]
